FAERS Safety Report 24530248 (Version 2)
Quarter: 2024Q4

REPORT INFORMATION
  Report Type: Report from Study
  Country: FR (occurrence: FR)
  Receive Date: 20241021
  Receipt Date: 20241110
  Transmission Date: 20250115
  Serious: Yes (Death)
  Sender: BIOGEN
  Company Number: FR-BIOGEN-2024BI01286993

PATIENT
  Age: 66 Year
  Sex: Male
  Weight: 88 kg

DRUGS (2)
  1. TOFERSEN [Suspect]
     Active Substance: TOFERSEN
     Indication: Amyotrophic lateral sclerosis
     Dosage: 1 LOADING DOSE ON D0, D14 AND D28, THEN 1 MAINTENANCE DOSE EVERY 28 DAYS (100 MG, I.E., 15 ML) FO...
     Route: 050
     Dates: start: 20220610, end: 20221101
  2. RILUZOLE [Concomitant]
     Active Substance: RILUZOLE
     Indication: Product used for unknown indication
     Route: 050
     Dates: start: 20201215

REACTIONS (2)
  - Amyotrophic lateral sclerosis [Fatal]
  - Drug ineffective [Recovered/Resolved]

NARRATIVE: CASE EVENT DATE: 20231031
